FAERS Safety Report 8156948 (Version 3)
Quarter: 2014Q3

REPORT INFORMATION
  Report Type: Report from Study
  Country: PH (occurrence: PH)
  Receive Date: 20110926
  Receipt Date: 20140821
  Transmission Date: 20150326
  Serious: Yes (Death, Hospitalization)
  Sender: FDA-Public Use
  Company Number: PHHO2011PH07229

PATIENT
  Age: 56 Year
  Sex: Male
  Weight: 70 kg

DRUGS (17)
  1. COMPARATOR ENALAPRIL [Suspect]
     Active Substance: ENALAPRIL
     Indication: CARDIAC FAILURE CHRONIC
     Dosage: UNK
     Route: 048
     Dates: start: 20100806, end: 20100908
  2. SPIRONOLACTONE. [Suspect]
     Active Substance: SPIRONOLACTONE
     Indication: OEDEMA
     Dosage: 25 MG, QD
     Dates: start: 20110502
  3. ISORBIDE [Concomitant]
     Active Substance: ISOSORBIDE
     Indication: ANGINA PECTORIS
     Dosage: 40 MG, QD
     Dates: start: 20110502
  4. LCZ696 [Suspect]
     Active Substance: INVESTIGATIONAL PRODUCT
     Dosage: 200 MG, BID
     Route: 048
     Dates: start: 20110502
  5. CARVEDILOL. [Concomitant]
     Active Substance: CARVEDILOL
     Indication: CARDIAC FAILURE CONGESTIVE
     Dosage: 0.25 MG, QD
     Dates: start: 20110502
  6. LASIX [Suspect]
     Active Substance: FUROSEMIDE
  7. LCZ696 [Suspect]
     Active Substance: INVESTIGATIONAL PRODUCT
     Indication: CARDIAC FAILURE CHRONIC
     Dosage: 200 MG, BID
     Route: 048
     Dates: start: 20100910, end: 20110420
  8. SIMVASTATIN. [Concomitant]
     Active Substance: SIMVASTATIN
     Indication: HYPERLIPIDAEMIA
     Dosage: 40 MG, QD
     Dates: start: 2007
  9. FUROSEMIDE. [Concomitant]
     Active Substance: FUROSEMIDE
  10. SIMVASTATIN. [Concomitant]
     Active Substance: SIMVASTATIN
     Indication: CORONARY ARTERY DISEASE
  11. METFORMIN [Concomitant]
     Active Substance: METFORMIN HYDROCHLORIDE
     Indication: TYPE 2 DIABETES MELLITUS
     Dosage: 500 MG, TID
     Dates: start: 20100816
  12. TRIMETAZIDINE [Concomitant]
     Active Substance: TRIMETAZIDINE
     Indication: ANGINA PECTORIS
     Dosage: 35 MG, BID
     Dates: start: 20110405
  13. LCZ696 [Suspect]
     Active Substance: INVESTIGATIONAL PRODUCT
     Indication: CARDIAC FAILURE CHRONIC
     Dosage: UNK
     Route: 048
     Dates: start: 20100722, end: 20100804
  14. DIGOXIN. [Suspect]
     Active Substance: DIGOXIN
     Indication: CARDIAC FAILURE CONGESTIVE
     Dosage: 0.25 MG, QD
     Dates: start: 2007
  15. INSULIN GLARGINE [Concomitant]
     Active Substance: INSULIN GLARGINE
     Indication: TYPE 2 DIABETES MELLITUS
     Dosage: 5 IU, QD
     Route: 058
     Dates: start: 20100805
  16. CLOPIDOGREL [Concomitant]
     Active Substance: CLOPIDOGREL BISULFATE
     Indication: ATHEROSCLEROSIS PROPHYLAXIS
     Dosage: 75 MG, QD
     Dates: start: 20110424
  17. ASPIRINE [Concomitant]
     Active Substance: ASPIRIN
     Indication: ATHEROSCLEROSIS PROPHYLAXIS
     Dosage: 80 MG, QD
     Dates: start: 2007

REACTIONS (3)
  - Gastroenteritis [Recovered/Resolved]
  - Concomitant disease progression [Fatal]
  - Arrhythmia [Fatal]

NARRATIVE: CASE EVENT DATE: 20110421
